FAERS Safety Report 7942440-X (Version None)
Quarter: 2011Q4

REPORT INFORMATION
  Report Type: 
  Country: None (occurrence: None)
  Receive Date: 20111128
  Receipt Date: 20111118
  Transmission Date: 20120403
  Serious: Yes (Hospitalization)
  Sender: FDA-Public Use
  Company Number: US-GLAXOSMITHKLINE-A0871783A

PATIENT
  Age: 54 Year
  Sex: Male

DRUGS (3)
  1. GLIPIZIDE [Concomitant]
  2. GLUCOPHAGE [Concomitant]
  3. AVANDIA [Suspect]
     Indication: DIABETES MELLITUS
     Dosage: 4MG PER DAY
     Dates: start: 20040101, end: 20071101

REACTIONS (1)
  - CEREBROVASCULAR ACCIDENT [None]
